FAERS Safety Report 14159009 (Version 1)
Quarter: 2017Q4

REPORT INFORMATION
  Report Type: Spontaneous
  Country: US (occurrence: US)
  Receive Date: 20171103
  Receipt Date: 20171103
  Transmission Date: 20180321
  Serious: Yes (Other)
  Sender: FDA-Public Use
  Company Number: US-INDIVIOR LIMITED-INDV-105857-2017

PATIENT
  Sex: Male

DRUGS (1)
  1. SUBOXONE [Suspect]
     Active Substance: BUPRENORPHINE HYDROCHLORIDE\NALOXONE HYDROCHLORIDE
     Indication: PRODUCT USED FOR UNKNOWN INDICATION
     Dosage: TOOK THREE 8 MG FILMS
     Route: 065
     Dates: start: 20171026

REACTIONS (3)
  - Upper limb fracture [Unknown]
  - Substance abuse [Unknown]
  - Pain [Unknown]

NARRATIVE: CASE EVENT DATE: 201710
